FAERS Safety Report 8866183 (Version 1)
Quarter: 2012Q4

REPORT INFORMATION
  Report Type: 
  Country: US (occurrence: US)
  Receive Date: 20121025
  Receipt Date: 20121025
  Transmission Date: 20130627
  Serious: Yes (Other)
  Sender: FDA-Public Use
  Company Number: PHHY2011US03839

PATIENT
  Sex: Male

DRUGS (2)
  1. EXJADE [Suspect]
     Indication: NEOPLASM
     Dosage: 1000 mg, QD
     Route: 048
     Dates: start: 20101028, end: 20101221
  2. EXJADE [Suspect]
     Dosage: 1000 mg, QD
     Route: 048
     Dates: start: 20120426, end: 20121012

REACTIONS (3)
  - Pneumonia [Unknown]
  - Dehydration [Unknown]
  - Diarrhoea [Unknown]
